FAERS Safety Report 5441570-4 (Version None)
Quarter: 2007Q3

REPORT INFORMATION
  Report Type: 
  Country: None (occurrence: None)
  Receive Date: 20070829
  Receipt Date: 20070817
  Transmission Date: 20080115
  Serious: Yes (Hospitalization)
  Sender: FDA-Public Use
  Company Number: GXKR2007DK07177

PATIENT
  Age: 48 Year
  Sex: Female
  Weight: 79 kg

DRUGS (1)
  1. PANAM RETARD (NGX)(PARACETAMOL) EXTENDED RELEASE TABLET, 500MG [Suspect]
     Indication: PAIN
     Dosage: 3000 MG, ORAL
     Route: 048
     Dates: start: 20070612, end: 20070726

REACTIONS (5)
  - HEADACHE [None]
  - MALAISE [None]
  - PHARMACEUTICAL PRODUCT COMPLAINT [None]
  - PYREXIA [None]
  - WEIGHT DECREASED [None]
